FAERS Safety Report 8765691 (Version 2)
Quarter: 2012Q4

REPORT INFORMATION
  Report Type: 
  Country: CL (occurrence: CL)
  Receive Date: 20120904
  Receipt Date: 20121112
  Transmission Date: 20130627
  Serious: Yes (Hospitalization)
  Sender: FDA-Public Use
  Company Number: PHHY2012CL075926

PATIENT
  Age: 55 Year
  Sex: Male

DRUGS (1)
  1. AFINITOR [Suspect]
     Indication: RENAL CANCER
     Dosage: 10 mg

REACTIONS (6)
  - Jaundice cholestatic [Unknown]
  - Bile duct stenosis [Unknown]
  - Peritonitis [Unknown]
  - Abdominal pain [Unknown]
  - Malignant neoplasm progression [Unknown]
  - Cholecystitis [Unknown]
